FAERS Safety Report 10156540 (Version 1)
Quarter: 2014Q2

REPORT INFORMATION
  Report Type: Spontaneous
  Country: US (occurrence: None)
  Receive Date: 20140505
  Receipt Date: 20140505
  Transmission Date: 20141212
  Serious: Yes (Hospitalization)
  Sender: FDA-Public Use
  Company Number: CIO14030779

PATIENT
  Age: 3 Year
  Sex: Female

DRUGS (1)
  1. CREST [Suspect]
     Dosage: 1 MOUTHFUL, 1 ONLY, ALMOST WHOLE TUBE
     Route: 048
     Dates: start: 20131015, end: 20131015

REACTIONS (3)
  - Toxicity to various agents [None]
  - Accidental exposure to product by child [None]
  - Exposure via ingestion [None]
